FAERS Safety Report 6223782-5 (Version None)
Quarter: 2009Q2

REPORT INFORMATION
  Report Type: 
  Country: None (occurrence: None)
  Receive Date: 20090611
  Receipt Date: 20090309
  Transmission Date: 20091009
  Serious: Yes (Other)
  Sender: FDA-Public Use
  Company Number: US-ABBOTT-09P-163-0500349-00

PATIENT
  Sex: Female
  Weight: 65.83 kg

DRUGS (8)
  1. HUMIRA [Suspect]
     Indication: CROHN'S DISEASE
     Route: 058
     Dates: start: 20070801, end: 20090128
  2. PENTASA [Concomitant]
     Indication: CROHN'S DISEASE
  3. M.V.I. [Concomitant]
     Indication: DRUG USE FOR UNKNOWN INDICATION
  4. ZINC [Concomitant]
     Indication: DRUG USE FOR UNKNOWN INDICATION
     Route: 048
  5. ADVIL [Concomitant]
     Indication: DRUG USE FOR UNKNOWN INDICATION
  6. TYLENOL (CAPLET) [Concomitant]
     Indication: DRUG USE FOR UNKNOWN INDICATION
  7. PROMETHAZINE [Concomitant]
     Indication: NAUSEA
  8. HYOSCYAMINE [Concomitant]
     Indication: GASTROINTESTINAL PAIN

REACTIONS (10)
  - ANAL INJURY [None]
  - ANORECTAL DISCOMFORT [None]
  - EAR PAIN [None]
  - FATIGUE [None]
  - LYMPHADENOPATHY [None]
  - MALIGNANT MELANOMA [None]
  - PAIN IN JAW [None]
  - PIGMENTATION DISORDER [None]
  - PYREXIA [None]
  - RECTAL DISCHARGE [None]
